FAERS Safety Report 6263051-0 (Version None)
Quarter: 2009Q3

REPORT INFORMATION
  Report Type: 
  Country: None (occurrence: None)
  Receive Date: 20090708
  Receipt Date: 20090708
  Transmission Date: 20100115
  Serious: Yes (Other)
  Sender: FDA-Public Use
  Company Number: None

PATIENT
  Age: 50 Year
  Sex: Male
  Weight: 83.9154 kg

DRUGS (2)
  1. ABRAXANE [Suspect]
     Indication: TONGUE DISORDER
     Dosage: 25 MG/M2 WEEKLY IV
     Route: 042
     Dates: start: 20090512, end: 20090623
  2. ABRAXANE [Suspect]
     Indication: TONSILLAR NEOPLASM
     Dosage: 25 MG/M2 WEEKLY IV
     Route: 042
     Dates: start: 20090512, end: 20090623

REACTIONS (1)
  - LYMPHOPENIA [None]
